FAERS Safety Report 20415975 (Version 1)
Quarter: 2022Q1

REPORT INFORMATION
  Report Type: Spontaneous
  Country: GB (occurrence: GB)
  Receive Date: 20220202
  Receipt Date: 20220202
  Transmission Date: 20220423
  Serious: Yes (Other)
  Sender: FDA-Public Use
  Company Number: GB-AMGEN-GBRSP2022014008

PATIENT
  Age: 42 Year
  Sex: Female

DRUGS (1)
  1. ADALIMUMAB [Suspect]
     Active Substance: ADALIMUMAB
     Indication: Seronegative arthritis
     Dosage: UNK
     Route: 065
     Dates: start: 2018

REACTIONS (1)
  - Peripheral sensory neuropathy [Recovering/Resolving]
